FAERS Safety Report 17057104 (Version 2)
Quarter: 2020Q1

REPORT INFORMATION
  Report Type: Report from Study
  Country: DE (occurrence: DE)
  Receive Date: 20191121
  Receipt Date: 20200113
  Transmission Date: 20200409
  Serious: Yes (Other)
  Sender: FDA-Public Use
  Company Number: NVSC2019DE042212

PATIENT
  Sex: Female
  Weight: 53 kg

DRUGS (3)
  1. GILENYA [Suspect]
     Active Substance: FINGOLIMOD HYDROCHLORIDE
     Indication: MULTIPLE SCLEROSIS
     Dosage: 0.5 MG, QD
     Route: 048
     Dates: start: 20181025
  2. METHYLPREDNISOLON [Concomitant]
     Active Substance: METHYLPREDNISOLONE
     Indication: RELAPSING MULTIPLE SCLEROSIS
     Dosage: 1000 MG
     Route: 065
     Dates: start: 20190211
  3. TRIMINEURIN [Concomitant]
     Active Substance: TRIMIPRAMINE MALEATE
     Indication: PROPHYLAXIS
     Dosage: 12 DRP
     Route: 065
     Dates: start: 20190211

REACTIONS (1)
  - Lymphopenia [Recovering/Resolving]

NARRATIVE: CASE EVENT DATE: 20191017
